FAERS Safety Report 23309876 (Version 1)
Quarter: 2023Q4

REPORT INFORMATION
  Report Type: Spontaneous
  Country: US (occurrence: US)
  Receive Date: 20231218
  Receipt Date: 20231218
  Transmission Date: 20240110
  Serious: No
  Sender: FDA-Public Use
  Company Number: US-JNJFOC-20231240746

PATIENT
  Sex: Male
  Weight: 72.64 kg

DRUGS (1)
  1. SPRAVATO [Suspect]
     Active Substance: ESKETAMINE
     Indication: Product used for unknown indication
     Dates: start: 20231212

REACTIONS (4)
  - Dissociation [Recovered/Resolved]
  - Blood pressure increased [Unknown]
  - Ataxia [Unknown]
  - Anxiety [Unknown]

NARRATIVE: CASE EVENT DATE: 20231212
